FAERS Safety Report 19438702 (Version 1)
Quarter: 2021Q2

REPORT INFORMATION
  Report Type: Spontaneous
  Country: DE (occurrence: DE)
  Receive Date: 20210618
  Receipt Date: 20210618
  Transmission Date: 20210717
  Serious: Yes (Hospitalization, Other)
  Sender: FDA-Public Use
  Company Number: DE-ASTRAZENECA-2021A525457

PATIENT
  Sex: Female

DRUGS (6)
  1. NASONEX [Concomitant]
     Active Substance: MOMETASONE FUROATE
     Dosage: 10X/D, SPORADICALLY IN COURSE
  2. PULMICORT TURBUHALER [Suspect]
     Active Substance: BUDESONIDE
     Route: 055
  3. SYMBICORT [Suspect]
     Active Substance: BUDESONIDE\FORMOTEROL FUMARATE DIHYDRATE
     Dosage: 320/9,TWO TIMES A DAY
     Route: 055
  4. SALBUTAMOL [Concomitant]
     Active Substance: ALBUTEROL
     Dosage: 10X/D, SPORADICALLY IN COURSE
  5. DEXASINE [Concomitant]
     Active Substance: DEXAMETHASONE SODIUM PHOSPHATE
     Dosage: 10X/D, SPORADICALLY IN COURSE
  6. BENRALIZUMAB. [Suspect]
     Active Substance: BENRALIZUMAB
     Indication: ASTHMA
     Route: 058
     Dates: start: 201803

REACTIONS (2)
  - Therapeutic product effect incomplete [Unknown]
  - Asthma [Unknown]
